FAERS Safety Report 7713178-9 (Version None)
Quarter: 2011Q3

REPORT INFORMATION
  Report Type: 
  Country: None (occurrence: None)
  Receive Date: 20110826
  Receipt Date: 20110823
  Transmission Date: 20111222
  Serious: Yes (Death)
  Sender: FDA-Public Use
  Company Number: JP-B.I. PHARMACEUTICALS,INC./RIDGEFIELD-2010-BP-01873NB

PATIENT
  Sex: Male

DRUGS (5)
  1. CROSS EIGHT M / ANTI-HEMOPHILIC GLOBULIN [Concomitant]
     Indication: HAEMOPHILIA
     Dates: end: 20091219
  2. ZIAGEN [Suspect]
     Indication: HIV INFECTION
     Dosage: 600 MG
     Route: 048
     Dates: start: 20000515, end: 20091219
  3. VIRAMUNE [Suspect]
     Indication: HIV INFECTION
     Dosage: 400 MG
     Route: 048
     Dates: start: 20000522, end: 20091219
  4. VIREAD [Suspect]
     Indication: HIV INFECTION
     Dosage: 300 MG
     Route: 048
     Dates: start: 20040510, end: 20091219
  5. CANDESARTAN CILEXETIL [Suspect]
     Indication: HYPERTENSION
     Dosage: 8 MG
     Route: 048
     Dates: end: 20091219

REACTIONS (1)
  - HAEMORRHAGE INTRACRANIAL [None]
